FAERS Safety Report 20181226 (Version 1)
Quarter: 2021Q4

REPORT INFORMATION
  Report Type: Spontaneous
  Country: US (occurrence: None)
  Receive Date: 20211214
  Receipt Date: 20211214
  Transmission Date: 20220303
  Serious: Yes (Other)
  Sender: FDA-Public Use
  Company Number: US-ADIENNEP-2021AD000657

PATIENT
  Age: 12 Year
  Sex: Female

DRUGS (6)
  1. THIOTEPA [Suspect]
     Active Substance: THIOTEPA
     Indication: Allogenic stem cell transplantation
  2. MELPHALAN [Suspect]
     Active Substance: MELPHALAN
     Indication: Allogenic stem cell transplantation
  3. FLUDARABINE [Suspect]
     Active Substance: FLUDARABINE PHOSPHATE
     Indication: Allogenic stem cell transplantation
  4. CYCLOPHOSPHAMIDE [Suspect]
     Active Substance: CYCLOPHOSPHAMIDE
     Indication: Allogenic stem cell transplantation
  5. LAPINE T-LYMPHOCYTE IMMUNE GLOBULIN [Suspect]
     Active Substance: LAPINE T-LYMPHOCYTE IMMUNE GLOBULIN
     Indication: Allogenic stem cell transplantation
  6. UNSPECIFIED INGREDIENT [Concomitant]
     Active Substance: UNSPECIFIED INGREDIENT

REACTIONS (7)
  - Cytomegalovirus viraemia [Recovered/Resolved]
  - Acute graft versus host disease in intestine [Recovered/Resolved]
  - Thrombotic microangiopathy [Unknown]
  - Organising pneumonia [Recovering/Resolving]
  - Pyrexia [Unknown]
  - Hyperferritinaemia [Unknown]
  - Cytomegalovirus infection reactivation [Unknown]
